FAERS Safety Report 9687235 (Version 1)
Quarter: 2013Q4

REPORT INFORMATION
  Report Type: Spontaneous
  Country: NL (occurrence: NL)
  Receive Date: 20131113
  Receipt Date: 20131113
  Transmission Date: 20140711
  Serious: Yes (Hospitalization, Congenital Anomaly)
  Sender: FDA-Public Use
  Company Number: NL-009507513-1311NLD001427

PATIENT
  Sex: Male

DRUGS (2)
  1. PUREGON [Suspect]
     Indication: ASSISTED FERTILISATION
     Dosage: UNK
     Route: 064
     Dates: start: 199801, end: 199801
  2. PUREGON [Suspect]
     Dosage: UNK
     Route: 064
     Dates: start: 199712, end: 199712

REACTIONS (5)
  - Arrhythmia [Not Recovered/Not Resolved]
  - Ventricular extrasystoles [Not Recovered/Not Resolved]
  - Congenital renal disorder [Unknown]
  - Umbilical cord vascular disorder [Unknown]
  - Foetal exposure during pregnancy [Recovered/Resolved]
